FAERS Safety Report 18992152 (Version 2)
Quarter: 2022Q2

REPORT INFORMATION
  Report Type: Spontaneous
  Country: CA (occurrence: CA)
  Receive Date: 20210310
  Receipt Date: 20220525
  Transmission Date: 20220721
  Serious: Yes (Hospitalization)
  Sender: FDA-Public Use
  Company Number: CA-AMERICAN REGENT INC-2021000580

PATIENT
  Age: 16 Year
  Sex: Female

DRUGS (11)
  1. VENOFER [Suspect]
     Active Substance: IRON SUCROSE
     Indication: Blood iron abnormal
     Dosage: UNK, SINGLE
     Route: 042
  2. VENOFER [Suspect]
     Active Substance: IRON SUCROSE
     Indication: Laboratory test abnormal
     Dosage: 300 MILLIGRAM, ONCE
     Dates: start: 20200630, end: 20200630
  3. VENOFER [Suspect]
     Active Substance: IRON SUCROSE
     Indication: Iron binding capacity total abnormal
  4. VENOFER [Suspect]
     Active Substance: IRON SUCROSE
     Indication: Serum ferritin decreased
  5. SODIUM CHLORIDE [Suspect]
     Active Substance: SODIUM CHLORIDE
     Indication: Product used for unknown indication
     Dosage: 275 MILLILITER
     Dates: start: 20200630, end: 20200630
  6. CANNABIS SATIVA SUBSP. INDICA TOP [Concomitant]
     Active Substance: CANNABIS SATIVA SUBSP. INDICA TOP
     Indication: Product used for unknown indication
     Dosage: UNK
     Route: 065
  7. MELATONIN [Concomitant]
     Active Substance: MELATONIN
     Indication: Product used for unknown indication
     Dosage: UNK
     Route: 065
     Dates: start: 20200629, end: 20200629
  8. NICOTINE [Concomitant]
     Active Substance: NICOTINE
     Indication: Product used for unknown indication
     Dosage: 10 MILLIGRAM
     Route: 065
     Dates: start: 20200630, end: 20200630
  9. QUETIAPINE [Concomitant]
     Active Substance: QUETIAPINE
     Indication: Product used for unknown indication
     Dosage: 25 MILLIGRAM
     Route: 065
     Dates: start: 20200629, end: 20200629
  10. TRAZODONE [Concomitant]
     Active Substance: TRAZODONE HYDROCHLORIDE
     Indication: Product used for unknown indication
     Dosage: UNK
     Route: 065
     Dates: start: 20200629, end: 20200629
  11. TUBERCULIN PURIFIED PROTEIN DERIVATIVE (MANTOUX) [Concomitant]
     Active Substance: TUBERCULIN PURIFIED PROTEIN DERIVATIVE (MANTOUX)
     Indication: Product used for unknown indication
     Dosage: UNK
     Route: 023
     Dates: start: 20200629, end: 20200629

REACTIONS (11)
  - Irritability [Unknown]
  - Musculoskeletal stiffness [Not Recovered/Not Resolved]
  - Pain [Recovering/Resolving]
  - Pallor [Unknown]
  - Paraesthesia [Unknown]
  - Rash [Recovered/Resolved]
  - Swelling [Recovering/Resolving]
  - Urticaria [Recovered/Resolved]
  - Pain in extremity [Recovering/Resolving]
  - Peripheral swelling [Recovering/Resolving]
  - Ill-defined disorder [Unknown]

NARRATIVE: CASE EVENT DATE: 20200630
